FAERS Safety Report 7228940-9 (Version None)
Quarter: 2011Q1

REPORT INFORMATION
  Report Type: 
  Country: None (occurrence: None)
  Receive Date: 20110117
  Receipt Date: 20110106
  Transmission Date: 20110831
  Serious: Yes (Hospitalization)
  Sender: FDA-Public Use
  Company Number: FR-SANOFI-AVENTIS-2011SA001257

PATIENT
  Age: 79 Year
  Sex: Female

DRUGS (2)
  1. FLUDEX [Suspect]
     Route: 048
     Dates: end: 20100722
  2. SINTROM [Concomitant]

REACTIONS (2)
  - HYPONATRAEMIA [None]
  - RECTAL HAEMORRHAGE [None]
